FAERS Safety Report 18026867 (Version 1)
Quarter: 2020Q3

REPORT INFORMATION
  Report Type: Spontaneous
  Country: US (occurrence: US)
  Receive Date: 20200716
  Receipt Date: 20200716
  Transmission Date: 20201103
  Serious: No
  Sender: FDA-Public Use
  Company Number: US-AMGEN-USASP2020112956

PATIENT
  Age: 29 Year
  Sex: Female

DRUGS (1)
  1. AIMOVIG [Suspect]
     Active Substance: ERENUMAB-AOOE
     Indication: MIGRAINE PROPHYLAXIS
     Dosage: 140 MILLIGRAM, EVERY 28 DAYS
     Route: 065
     Dates: start: 2019

REACTIONS (2)
  - Incorrect dose administered by device [Unknown]
  - Device defective [Unknown]

NARRATIVE: CASE EVENT DATE: 20200709
